FAERS Safety Report 4688032-X (Version None)
Quarter: 2005Q2

REPORT INFORMATION
  Report Type: 
  Country: None (occurrence: None)
  Receive Date: 20050609
  Receipt Date: 20050527
  Transmission Date: 20051028
  Serious: Yes (Other)
  Sender: FDA-Public Use
  Company Number: 2005083120

PATIENT
  Sex: Female

DRUGS (2)
  1. CELEBREX [Suspect]
     Indication: ILL-DEFINED DISORDER
  2. ZOLOFT [Suspect]
     Indication: ILL-DEFINED DISORDER

REACTIONS (6)
  - ANKLE OPERATION [None]
  - DEPRESSION [None]
  - PAIN IN EXTREMITY [None]
  - POST PROCEDURAL PAIN [None]
  - TREATMENT NONCOMPLIANCE [None]
  - WALKING AID USER [None]
